FAERS Safety Report 9776546 (Version 2)
Quarter: 2014Q2

REPORT INFORMATION
  Report Type: Spontaneous
  Country: FR (occurrence: FR)
  Receive Date: 20131220
  Receipt Date: 20140519
  Transmission Date: 20141212
  Serious: Yes (Other)
  Sender: FDA-Public Use
  Company Number: FR-GILEAD-2013-0090121

PATIENT
  Age: 46 Year
  Sex: Male

DRUGS (3)
  1. TRUVADA [Suspect]
     Indication: HIV INFECTION
     Dosage: 1 DF, QD
     Route: 048
     Dates: start: 20090105, end: 20130801
  2. REYATAZ [Concomitant]
     Indication: HIV INFECTION
     Dosage: UNK
     Dates: start: 20090105
  3. NORVIR [Concomitant]
     Indication: HIV INFECTION
     Dosage: UNK
     Dates: start: 20090105

REACTIONS (2)
  - Osteoporosis [Unknown]
  - Renal tubular disorder [Unknown]
